FAERS Safety Report 22948120 (Version 2)
Quarter: 2023Q4

REPORT INFORMATION
  Report Type: Report from Study
  Country: GB (occurrence: GB)
  Receive Date: 20230915
  Receipt Date: 20231027
  Transmission Date: 20240109
  Serious: Yes (Death, Hospitalization, Other)
  Sender: FDA-Public Use
  Company Number: GB-SERVIER-S23010464

PATIENT

DRUGS (7)
  1. CYCLIZINE [Concomitant]
     Active Substance: CYCLIZINE
     Indication: Prophylaxis of nausea and vomiting
     Dosage: 50 MG, PRN
     Route: 048
     Dates: start: 20230829
  2. OMEPRAZOLE [Concomitant]
     Active Substance: OMEPRAZOLE
     Indication: Abdominal discomfort
     Dosage: 20 MG, QD
     Route: 048
     Dates: start: 20230829
  3. SENNA [Concomitant]
     Active Substance: SENNA LEAF\SENNOSIDES\SENNOSIDES A AND B
     Indication: Constipation
     Dosage: 7.5 MG, QD
     Route: 048
     Dates: start: 20230829
  4. SCOPOLAMINE [Concomitant]
     Active Substance: SCOPOLAMINE
     Indication: Nausea
     Dosage: 1 MG, OTHER
     Route: 062
     Dates: start: 20230829
  5. APIXABAN [Concomitant]
     Active Substance: APIXABAN
     Indication: Thrombosis prophylaxis
     Dosage: 5 MG, QD
     Route: 048
     Dates: start: 20230829
  6. LEVOMEPROMAZINE [Concomitant]
     Active Substance: LEVOMEPROMAZINE
     Indication: Nausea
     Dosage: 25 MG, BID
     Route: 048
     Dates: start: 20230829
  7. FERROUS SULFATE [Concomitant]
     Active Substance: FERROUS SULFATE
     Indication: Blood iron decreased
     Dosage: 200 MG, QD
     Route: 048
     Dates: start: 20230829

REACTIONS (2)
  - General physical health deterioration [Fatal]
  - Ascites [Recovering/Resolving]

NARRATIVE: CASE EVENT DATE: 20230831
